FAERS Safety Report 14001555 (Version 2)
Quarter: 2017Q4

REPORT INFORMATION
  Report Type: Spontaneous
  Country: SE (occurrence: SE)
  Receive Date: 20170922
  Receipt Date: 20171116
  Transmission Date: 20180321
  Serious: Yes (Hospitalization, Other)
  Sender: FDA-Public Use
  Company Number: SE-MYLANLABS-2017M1058295

PATIENT
  Sex: Female
  Weight: 39 kg

DRUGS (10)
  1. EFEXOR [Suspect]
     Active Substance: VENLAFAXINE HYDROCHLORIDE
     Indication: DEPRESSION
  2. ZOLOFT [Suspect]
     Active Substance: SERTRALINE HYDROCHLORIDE
     Indication: PRODUCT USED FOR UNKNOWN INDICATION
     Dosage: UNK
  3. QUETIAPIN [Suspect]
     Active Substance: QUETIAPINE
     Indication: PRODUCT USED FOR UNKNOWN INDICATION
     Dosage: UNK
  4. RITALIN [Suspect]
     Active Substance: METHYLPHENIDATE HYDROCHLORIDE
     Indication: PRODUCT USED FOR UNKNOWN INDICATION
     Dosage: 140 MG, QD, EACH DAY
     Route: 048
     Dates: start: 2009
  5. IMOVANE [Suspect]
     Active Substance: ZOPICLONE
     Indication: PRODUCT USED FOR UNKNOWN INDICATION
     Dosage: 7.5 MG, QD, 1 BEFORE BEDTIME
     Route: 048
     Dates: start: 2009
  6. SERTRALINE [Suspect]
     Active Substance: SERTRALINE HYDROCHLORIDE
     Indication: BURNOUT SYNDROME
     Dosage: UNK
     Route: 065
     Dates: start: 2002
  7. LYRICA [Suspect]
     Active Substance: PREGABALIN
     Indication: BIPOLAR DISORDER
     Dosage: UNK
     Route: 065
     Dates: end: 2010
  8. EFEXOR [Suspect]
     Active Substance: VENLAFAXINE HYDROCHLORIDE
     Indication: BIPOLAR DISORDER
     Dosage: UNK
     Route: 065
     Dates: start: 2010
  9. EFEXOR [Suspect]
     Active Substance: VENLAFAXINE HYDROCHLORIDE
     Indication: ANXIETY
  10. ATARAX [Suspect]
     Active Substance: HYDROXYZINE HYDROCHLORIDE
     Indication: PRODUCT USED FOR UNKNOWN INDICATION
     Dosage: UNK

REACTIONS (17)
  - Libido decreased [Unknown]
  - Somnambulism [Recovered/Resolved]
  - Back pain [Not Recovered/Not Resolved]
  - Diplopia [Not Recovered/Not Resolved]
  - Cardiac disorder [Unknown]
  - Rash [Unknown]
  - Tremor [Unknown]
  - Coeliac disease [Not Recovered/Not Resolved]
  - Negative thoughts [Recovered/Resolved]
  - Tinnitus [Not Recovered/Not Resolved]
  - Antisocial behaviour [Unknown]
  - Nightmare [Unknown]
  - Pain in extremity [Not Recovered/Not Resolved]
  - Panic disorder [Unknown]
  - Fear [Unknown]
  - Depression [Unknown]
  - Disturbance in attention [Unknown]

NARRATIVE: CASE EVENT DATE: 2009
